FAERS Safety Report 6929372-0 (Version None)
Quarter: 2010Q3

REPORT INFORMATION
  Report Type: 
  Country: None (occurrence: None)
  Receive Date: 20100818
  Receipt Date: 20100811
  Transmission Date: 20110219
  Serious: Yes (Hospitalization)
  Sender: FDA-Public Use
  Company Number: US-BIOGENIDEC-2009BI030868

PATIENT
  Sex: Female
  Weight: 63 kg

DRUGS (9)
  1. TYSABRI [Suspect]
     Indication: MULTIPLE SCLEROSIS
     Route: 042
     Dates: start: 20080829, end: 20100101
  2. TYSABRI [Suspect]
     Route: 042
     Dates: start: 20100501
  3. LISINOPRIL [Concomitant]
  4. PLAVIX [Concomitant]
  5. PRAVASTATIN [Concomitant]
  6. ZANAFLEX [Concomitant]
  7. NEURONTIN [Concomitant]
  8. TOPAMAX [Concomitant]
  9. CYMBALTA [Concomitant]

REACTIONS (6)
  - ANGIOPATHY [None]
  - DENTAL CARIES [None]
  - GAIT DISTURBANCE [None]
  - MEMORY IMPAIRMENT [None]
  - VASCULAR STENT INSERTION [None]
  - VISUAL IMPAIRMENT [None]
